FAERS Safety Report 6486770-X (Version None)
Quarter: 2009Q4

REPORT INFORMATION
  Report Type: 
  Country: None (occurrence: None)
  Receive Date: 20091123
  Receipt Date: 20090914
  Transmission Date: 20100525
  Serious: No
  Sender: FDA-Public Use
  Company Number: 8052010

PATIENT
  Age: 54 Year
  Sex: Female

DRUGS (1)
  1. CIMZIA [Suspect]
     Indication: CROHN'S DISEASE
     Dosage: MG SC
     Route: 058
     Dates: start: 20081130

REACTIONS (7)
  - ABDOMINAL PAIN [None]
  - BRONCHITIS [None]
  - DECREASED APPETITE [None]
  - GASTROINTESTINAL MOTILITY DISORDER [None]
  - INTESTINAL OBSTRUCTION [None]
  - MALAISE [None]
  - VOMITING [None]
